FAERS Safety Report 4726957-7 (Version None)
Quarter: 2005Q3

REPORT INFORMATION
  Report Type: 
  Country: None (occurrence: None)
  Receive Date: 20050725
  Receipt Date: 20050725
  Transmission Date: 20060218
  Serious: Yes (Hospitalization)
  Sender: FDA-Public Use
  Company Number: None

PATIENT
  Age: 48 Year
  Sex: Male
  Weight: 81.3 kg

DRUGS (1)
  1. PHENYTOIN [Suspect]
     Indication: CONVULSION
     Dosage: 400MG   BID  ORAL
     Route: 048

REACTIONS (5)
  - ANTICONVULSANT TOXICITY [None]
  - BALANCE DISORDER [None]
  - DIZZINESS [None]
  - TREMOR [None]
  - VISION BLURRED [None]
